FAERS Safety Report 9819113 (Version 1)
Quarter: 2014Q1

REPORT INFORMATION
  Report Type: Spontaneous
  Country: US (occurrence: US)
  Receive Date: 20140115
  Receipt Date: 20140115
  Transmission Date: 20141002
  Serious: No
  Sender: FDA-Public Use
  Company Number: US-ENDO PHARMACEUTICALS INC.-PERC20130064

PATIENT
  Age: 81 Year
  Sex: Male
  Weight: 105.33 kg

DRUGS (3)
  1. PERCOCET 10MG/325MG [Suspect]
     Indication: ARTHRALGIA
     Dosage: 40/1300 MG
     Route: 048
     Dates: start: 201304
  2. LEVAQUIN [Concomitant]
     Indication: URINARY TRACT INFECTION
     Dosage: UNK
     Route: 048
     Dates: start: 20130417, end: 20130419
  3. AMOXICILLIN [Concomitant]
     Indication: URINARY TRACT INFECTION
     Dosage: UNK
     Route: 065
     Dates: start: 201304

REACTIONS (1)
  - Impaired driving ability [Not Recovered/Not Resolved]
